FAERS Safety Report 13980490 (Version 1)
Quarter: 2017Q3

REPORT INFORMATION
  Report Type: Spontaneous
  Country: US (occurrence: US)
  Receive Date: 20170918
  Receipt Date: 20170918
  Transmission Date: 20171128
  Serious: No
  Sender: FDA-Public Use
  Company Number: PHHY2017US136970

PATIENT

DRUGS (1)
  1. SYSTANE LUBRICANT [Suspect]
     Active Substance: POLYETHYLENE GLYCOL 400\PROPYLENE GLYCOL
     Indication: EYE LUBRICATION THERAPY
     Route: 047

REACTIONS (1)
  - Visual impairment [Unknown]

NARRATIVE: CASE EVENT DATE: 201708
